FAERS Safety Report 6179210-1 (Version None)
Quarter: 2009Q2

REPORT INFORMATION
  Report Type: 
  Country: None (occurrence: None)
  Receive Date: 20090430
  Receipt Date: 20090424
  Transmission Date: 20091009
  Serious: Yes (Death)
  Sender: FDA-Public Use
  Company Number: HA09-008-AE

PATIENT
  Age: 70 Year
  Sex: Female
  Weight: 82 kg

DRUGS (11)
  1. NAPROXEN [Suspect]
     Indication: OSTEOARTHRITIS
     Dosage: BID, ORALLY
     Route: 048
     Dates: start: 20070417, end: 20080502
  2. CELECOXIB; IBUPROFEN; PLACEBO [Suspect]
     Indication: OSTEOARTHRITIS
     Dosage: BID, ORALLY
     Route: 048
     Dates: start: 20070417, end: 20080502
  3. ASPIRIN [Concomitant]
  4. NISOLDIPINE [Concomitant]
  5. ATENOLOL [Concomitant]
  6. LISINOPRIL [Concomitant]
  7. HYDROCODONE BITARTRATE [Concomitant]
  8. FLUOXETINE HCL [Concomitant]
  9. ZOCOR [Concomitant]
  10. HYDROCHLOROTHIAZIDE [Concomitant]
  11. ESOMEPRAZOLE (NEXIUM) 40 MG [Concomitant]

REACTIONS (1)
  - MYOCARDIAL INFARCTION [None]
